FAERS Safety Report 16407891 (Version 2)
Quarter: 2019Q2

REPORT INFORMATION
  Report Type: Spontaneous
  Country: US (occurrence: US)
  Receive Date: 20190610
  Receipt Date: 20190611
  Transmission Date: 20190711
  Serious: No
  Sender: FDA-Public Use
  Company Number: US-JNJFOC-20190527211

PATIENT
  Age: 77 Year
  Sex: Female
  Weight: 58.97 kg

DRUGS (2)
  1. WOMENS ROGAINE UNSCENTED [Suspect]
     Active Substance: MINOXIDIL
     Indication: HORMONE LEVEL ABNORMAL
     Dosage: 1/2 CAPFUL
     Route: 061
  2. WOMENS ROGAINE UNSCENTED [Suspect]
     Active Substance: MINOXIDIL
     Route: 061

REACTIONS (4)
  - Alopecia [Recovering/Resolving]
  - Hair texture abnormal [Recovering/Resolving]
  - Product use in unapproved indication [Unknown]
  - Off label use [Unknown]
